FAERS Safety Report 9387415 (Version 3)
Quarter: 2013Q3

REPORT INFORMATION
  Report Type: Spontaneous
  Country: US (occurrence: None)
  Receive Date: 20130702
  Receipt Date: 20130731
  Transmission Date: 20140515
  Serious: Yes (Other)
  Sender: FDA-Public Use
  Company Number: JPI-P-033220

PATIENT
  Age: 41 Year
  Sex: Female

DRUGS (3)
  1. XYREM [Suspect]
     Indication: NARCOLEPSY
     Dosage: DOSAGE TAKEN AT NIGHT/BEDTIME, 2.25 GM EACH.
     Route: 048
     Dates: start: 20121120
  2. METHYLPHENIDATE [Suspect]
     Indication: PRODUCT USED FOR UNKNOWN INDICATION
  3. ALLERGY SHOTS [Suspect]
     Indication: HYPERSENSITIVITY
     Dosage: INJECTION

REACTIONS (12)
  - Systemic lupus erythematosus [None]
  - Anxiety [None]
  - Arthralgia [None]
  - Nasopharyngitis [None]
  - Malaise [None]
  - Alopecia [None]
  - Weight decreased [None]
  - Skin discolouration [None]
  - Pruritus [None]
  - Erythema [None]
  - Pain in extremity [None]
  - Antinuclear antibody positive [None]
